FAERS Safety Report 25563781 (Version 2)
Quarter: 2025Q3

REPORT INFORMATION
  Report Type: Spontaneous
  Country: EU (occurrence: EU)
  Receive Date: 20250716
  Receipt Date: 20250729
  Transmission Date: 20251021
  Serious: Yes (Other)
  Sender: ROCHE
  Company Number: None

PATIENT
  Age: 31 Year
  Sex: Female
  Weight: 65 kg

DRUGS (13)
  1. PERTUZUMAB [Suspect]
     Active Substance: PERTUZUMAB
     Indication: Breast cancer
     Route: 042
     Dates: start: 202401, end: 202404
  2. TRASTUZUMAB [Suspect]
     Active Substance: TRASTUZUMAB
     Indication: Breast cancer
     Route: 042
     Dates: start: 202401, end: 202404
  3. TRASTUZUMAB [Suspect]
     Active Substance: TRASTUZUMAB
     Route: 042
     Dates: start: 20240517, end: 202406
  4. TRASTUZUMAB [Suspect]
     Active Substance: TRASTUZUMAB
     Route: 042
     Dates: start: 202501, end: 20250425
  5. KADCYLA [Suspect]
     Active Substance: ADO-TRASTUZUMAB EMTANSINE
     Indication: Breast cancer
     Route: 042
     Dates: start: 20240628, end: 202410
  6. PHESGO [Suspect]
     Active Substance: HYALURONIDASE-ZZXF\PERTUZUMAB\TRASTUZUMAB
     Indication: Breast cancer
     Route: 042
     Dates: start: 202401, end: 202404
  7. XELODA [Suspect]
     Active Substance: CAPECITABINE
     Indication: Metastases to central nervous system
     Route: 048
     Dates: start: 202501
  8. DOXORUBICIN HYDROCHLORIDE [Suspect]
     Active Substance: DOXORUBICIN HYDROCHLORIDE
     Indication: Breast cancer
     Route: 042
     Dates: start: 202310, end: 202312
  9. TUKYSA [Suspect]
     Active Substance: TUCATINIB
     Indication: Breast cancer
     Route: 048
     Dates: start: 202501
  10. TRAZIMERA [Suspect]
     Active Substance: TRASTUZUMAB-QYYP
     Indication: Metastases to central nervous system
     Route: 042
     Dates: start: 202401, end: 202404
  11. TRAZIMERA [Suspect]
     Active Substance: TRASTUZUMAB-QYYP
     Route: 042
     Dates: start: 20240517
  12. TRAZIMERA [Suspect]
     Active Substance: TRASTUZUMAB-QYYP
     Route: 042
     Dates: start: 202501, end: 20250425
  13. CYCLOPHOSPHAMIDE [Suspect]
     Active Substance: CYCLOPHOSPHAMIDE
     Indication: Product used for unknown indication
     Route: 065
     Dates: start: 202310, end: 202312

REACTIONS (4)
  - Dilated cardiomyopathy [Not Recovered/Not Resolved]
  - Ejection fraction decreased [Not Recovered/Not Resolved]
  - Cardiotoxicity [Unknown]
  - Maternal exposure during pregnancy [Unknown]

NARRATIVE: CASE EVENT DATE: 20250613
